FAERS Safety Report 6313225-5 (Version None)
Quarter: 2009Q3

REPORT INFORMATION
  Report Type: 
  Country: None (occurrence: None)
  Receive Date: 20090814
  Receipt Date: 20090731
  Transmission Date: 20100115
  Serious: Yes (Death, Hospitalization)
  Sender: FDA-Public Use
  Company Number: 2009002148

PATIENT
  Age: 69 Year
  Sex: Female
  Weight: 47.8 kg

DRUGS (7)
  1. ERLOTINIB(ERLOTINIB) (TABLET) (ERLOTINIB) [Suspect]
     Indication: NON-SMALL CELL LUNG CANCER
     Dosage: (150 MG,QD),ORAL
     Route: 048
     Dates: start: 20090511, end: 20090601
  2. CP-751,871 [Suspect]
     Indication: NON-SMALL CELL LUNG CANCER
     Dosage: (1018 MG, 1X DAILY FOR 2 DAYS EVERY 3 WEEKS,), INTRAVENOUS
     Route: 042
     Dates: start: 20090511, end: 20090511
  3. DICLOFENAC (DICLOFENAC) [Concomitant]
  4. PARACETAMOL (PARCETAMOL) [Concomitant]
  5. LANSOPRAZOLE [Concomitant]
  6. DEXAMETHASONE TAB [Concomitant]
  7. VALPROATE SODIUM [Concomitant]

REACTIONS (4)
  - CAMPYLOBACTER INTESTINAL INFECTION [None]
  - CONFUSIONAL STATE [None]
  - DEHYDRATION [None]
  - RENAL FAILURE ACUTE [None]
